FAERS Safety Report 5360944-3 (Version None)
Quarter: 2007Q2

REPORT INFORMATION
  Report Type: 
  Country: None (occurrence: None)
  Receive Date: 20070618
  Receipt Date: 20070607
  Transmission Date: 20071010
  Serious: Yes (Disabling)
  Sender: FDA-Public Use
  Company Number: US-PFIZER INC-2007031263

PATIENT
  Sex: Male

DRUGS (15)
  1. TIKOSYN [Suspect]
     Dates: end: 20070328
  2. TIKOSYN [Suspect]
     Dates: start: 20070427
  3. PLETAL [Concomitant]
  4. ZOCOR [Concomitant]
  5. FLOMAX [Concomitant]
  6. LASIX [Concomitant]
  7. ZESTRIL [Concomitant]
  8. PLAVIX [Concomitant]
  9. COZAAR [Concomitant]
  10. PROSCAR [Concomitant]
  11. TOPROL-XL [Concomitant]
  12. GLIPIZIDE [Concomitant]
  13. METFORMIN HCL [Concomitant]
  14. FERROUS SULFATE [Concomitant]
  15. COUMADIN [Concomitant]

REACTIONS (1)
  - UNEVALUABLE EVENT [None]
